FAERS Safety Report 9031931 (Version 1)
Quarter: 2013Q1

REPORT INFORMATION
  Report Type: Spontaneous
  Country: US (occurrence: US)
  Receive Date: 20130125
  Receipt Date: 20130125
  Transmission Date: 20140127
  Serious: Yes (Other)
  Sender: FDA-Public Use
  Company Number: US-PFIZER INC-2013031666

PATIENT
  Age: 52 Year
  Sex: Female
  Weight: 77.1 kg

DRUGS (2)
  1. LYRICA [Suspect]
     Indication: NEURALGIA
     Dosage: 75 MG, 2X/DAY
     Route: 048
     Dates: start: 201301
  2. ACETAMINOPHEN [Concomitant]
     Dosage: 650 MG, AS NEEDED

REACTIONS (4)
  - Nerve injury [Not Recovered/Not Resolved]
  - Intervertebral disc displacement [Not Recovered/Not Resolved]
  - Nerve compression [Not Recovered/Not Resolved]
  - Memory impairment [Not Recovered/Not Resolved]
